FAERS Safety Report 10219980 (Version 1)
Quarter: 2014Q2

REPORT INFORMATION
  Report Type: Spontaneous
  Country: US (occurrence: US)
  Receive Date: 20140605
  Receipt Date: 20140605
  Transmission Date: 20141212
  Serious: Yes (Hospitalization)
  Sender: FDA-Public Use
  Company Number: US-B.I. PHARMACEUTICALS,INC./RIDGEFIELD-2014-BI-24845BP

PATIENT
  Sex: Female

DRUGS (6)
  1. DIOVAN [Concomitant]
     Route: 048
  2. TRIAM/HCTZ [Concomitant]
     Route: 048
  3. KLORCON [Concomitant]
     Indication: BLOOD POTASSIUM DECREASED
     Route: 048
  4. COMBIVENT [Suspect]
     Indication: CHRONIC OBSTRUCTIVE PULMONARY DISEASE
     Dosage: STRENGTH: 18 MCG / 103 MCG; DAILY DOSE: 144 MCG/ 824 MCG
     Route: 055
     Dates: start: 2003, end: 201405
  5. LEVOTHYROXINE [Concomitant]
     Route: 048
  6. METOPROLOL [Concomitant]
     Indication: CARDIAC DISORDER
     Route: 048

REACTIONS (4)
  - Colon cancer [Recovered/Resolved]
  - Hernia [Recovered/Resolved]
  - Gallbladder disorder [Recovered/Resolved]
  - Rheumatoid arthritis [Not Recovered/Not Resolved]
